FAERS Safety Report 4886030-4 (Version None)
Quarter: 2006Q1

REPORT INFORMATION
  Report Type: 
  Country: None (occurrence: None)
  Receive Date: 20060118
  Receipt Date: 20060118
  Transmission Date: 20060701
  Serious: No
  Sender: FDA-Public Use
  Company Number: None

PATIENT
  Age: 59 Year
  Sex: Female

DRUGS (1)
  1. SOLUMEDROL - UPJOHN [Suspect]
     Indication: MULTIPLE SCLEROSIS
     Dosage: 1 GM 3 DAYS IV
     Route: 042
     Dates: start: 20060113

REACTIONS (5)
  - BACK PAIN [None]
  - BLOOD PRESSURE INCREASED [None]
  - DIZZINESS [None]
  - MUSCULOSKELETAL STIFFNESS [None]
  - TREMOR [None]
